FAERS Safety Report 14430304 (Version 1)
Quarter: 2018Q1

REPORT INFORMATION
  Report Type: Spontaneous
  Country: US (occurrence: US)
  Receive Date: 20180123
  Receipt Date: 20180123
  Transmission Date: 20180509
  Serious: Yes (Hospitalization)
  Sender: FDA-Public Use
  Company Number: None

PATIENT
  Age: 69 Year
  Sex: Female

DRUGS (10)
  1. ASA-81 [Concomitant]
  2. KEPPRA [Concomitant]
     Active Substance: LEVETIRACETAM
  3. NOVOLOG [Concomitant]
     Active Substance: INSULIN ASPART
  4. OMEPRAZOLE. [Concomitant]
     Active Substance: OMEPRAZOLE
  5. LANTUS [Concomitant]
     Active Substance: INSULIN GLARGINE
  6. MYCOPHENOLATE 500MG [Suspect]
     Active Substance: MYCOPHENOLIC ACID
     Indication: LIVER TRANSPLANT
     Route: 048
     Dates: start: 20120601
  7. LOSARTAN. [Concomitant]
     Active Substance: LOSARTAN
  8. GABAPENTIN. [Concomitant]
     Active Substance: GABAPENTIN
  9. TACROILMUS 1MG [Suspect]
     Active Substance: TACROLIMUS
     Indication: LIVER TRANSPLANT
     Dosage: 3 CAPSULES QAM AND 2 CAPS QPM
     Route: 048
     Dates: start: 20120601
  10. PROCARDIA [Concomitant]
     Active Substance: NIFEDIPINE

REACTIONS (1)
  - Skin cancer [None]
